FAERS Safety Report 6478862-6 (Version None)
Quarter: 2009Q4

REPORT INFORMATION
  Report Type: 
  Country: None (occurrence: None)
  Receive Date: 20091207
  Receipt Date: 20091125
  Transmission Date: 20100525
  Serious: Yes (Hospitalization, Disabling)
  Sender: FDA-Public Use
  Company Number: BR-GILEAD-2009-0024574

PATIENT
  Sex: Male
  Weight: 66 kg

DRUGS (16)
  1. VIREAD [Suspect]
     Indication: HIV INFECTION
     Route: 048
     Dates: start: 20060801, end: 20090619
  2. VIREAD [Suspect]
     Route: 048
     Dates: start: 20090707
  3. TMC125 [Suspect]
     Indication: HIV INFECTION
     Route: 048
     Dates: start: 20060817
  4. TMC114 [Suspect]
     Indication: HIV INFECTION
     Route: 048
     Dates: start: 20060801
  5. RITONAVIR [Suspect]
     Indication: HIV INFECTION
     Route: 048
     Dates: start: 20060801
  6. VIDEX [Suspect]
     Indication: HIV INFECTION
     Dates: start: 20060817, end: 20090619
  7. VIDEX [Suspect]
     Dates: start: 20090707
  8. RALTEGRAVIR [Concomitant]
     Dates: start: 20090817
  9. FUZEON [Concomitant]
     Indication: HIV INFECTION
     Dates: start: 20070207, end: 20090817
  10. BACLOFEN [Concomitant]
  11. BROMOPRIDE [Concomitant]
     Route: 042
  12. PANTOPRAZOL [Concomitant]
     Route: 042
  13. CITALOPRAM HYDROBROMIDE [Concomitant]
     Route: 048
  14. CLONAZEPAM [Concomitant]
     Route: 048
  15. ACYCLOVIR [Concomitant]
     Indication: HERPES SIMPLEX
     Dates: start: 20090401
  16. BACTRIM [Concomitant]
     Indication: PNEUMOCYSTIS JIROVECI PNEUMONIA
     Route: 048

REACTIONS (2)
  - BACK PAIN [None]
  - OSTEOPOROSIS [None]
